FAERS Safety Report 23188234 (Version 2)
Quarter: 2025Q1

REPORT INFORMATION
  Report Type: Spontaneous
  Country: US (occurrence: US)
  Receive Date: 20231115
  Receipt Date: 20250220
  Transmission Date: 20250408
  Serious: No
  Sender: PFIZER
  Company Number: US-PFIZER INC-PV202300185017

PATIENT
  Age: 69 Year
  Sex: Female

DRUGS (13)
  1. IBRANCE [Suspect]
     Active Substance: PALBOCICLIB
     Indication: Breast cancer
     Route: 048
     Dates: start: 20220310
  2. IBRANCE [Suspect]
     Active Substance: PALBOCICLIB
     Route: 048
     Dates: start: 20240226
  3. ALPRAZOLAM [Concomitant]
     Active Substance: ALPRAZOLAM
  4. AMLODIPINE BESYLATE [Concomitant]
     Active Substance: AMLODIPINE BESYLATE
  5. IPRATROPIUM [Concomitant]
     Active Substance: IPRATROPIUM
  6. LOSARTAN [Concomitant]
     Active Substance: LOSARTAN
  7. LETROZOLE [Concomitant]
     Active Substance: LETROZOLE
  8. SPIRIVA RESPIMAT [Concomitant]
     Active Substance: TIOTROPIUM BROMIDE
  9. TRELEGY ELLIPTA [Concomitant]
     Active Substance: FLUTICASONE FUROATE\UMECLIDINIUM BROMIDE\VILANTEROL TRIFENATATE
  10. VITAMIN D3 [Concomitant]
     Active Substance: CHOLECALCIFEROL
  11. TYLENOL [Concomitant]
     Active Substance: ACETAMINOPHEN
  12. DOXYCYCLINE HYCLATE [Concomitant]
     Active Substance: DOXYCYCLINE HYCLATE
  13. PREDNISONE [Concomitant]
     Active Substance: PREDNISONE

REACTIONS (4)
  - Hypoaesthesia [Unknown]
  - Paraesthesia [Unknown]
  - Erythema [Unknown]
  - Staphylococcal infection [Unknown]
